FAERS Safety Report 4587252-2 (Version None)
Quarter: 2005Q1

REPORT INFORMATION
  Report Type: 
  Country: None (occurrence: None)
  Receive Date: 20050218
  Receipt Date: 20050210
  Transmission Date: 20050727
  Serious: Yes (Other)
  Sender: FDA-Public Use
  Company Number: GB-GLAXOSMITHKLINE-B0371051A

PATIENT
  Sex: Female

DRUGS (1)
  1. ZIAGEN [Suspect]
     Indication: HIV INFECTION
     Route: 065
     Dates: start: 20050210

REACTIONS (2)
  - HEPATOTOXICITY [None]
  - PANCYTOPENIA [None]
